FAERS Safety Report 8384504-5 (Version None)
Quarter: 2012Q2

REPORT INFORMATION
  Report Type: 
  Country: None (occurrence: None)
  Receive Date: 20120524
  Receipt Date: 20120518
  Transmission Date: 20120825
  Serious: Yes (Death, Hospitalization, Other)
  Sender: FDA-Public Use
  Company Number: JP-ELI_LILLY_AND_COMPANY-JP201201001567

PATIENT
  Age: 71 Year
  Sex: Male

DRUGS (3)
  1. FRESMIN S [Concomitant]
     Dosage: UNK
     Dates: end: 20091016
  2. ALIMTA [Suspect]
     Indication: NON-SMALL CELL LUNG CANCER
     Dosage: 500 MG, OTHER
     Route: 042
     Dates: start: 20091026, end: 20091120
  3. PANVITAN                           /00466101/ [Concomitant]
     Dosage: UNK
     Dates: start: 20091119

REACTIONS (3)
  - MALAISE [None]
  - NEOPLASM PROGRESSION [None]
  - PERFORMANCE STATUS DECREASED [None]
